FAERS Safety Report 10942276 (Version 2)
Quarter: 2015Q2

REPORT INFORMATION
  Report Type: Spontaneous
  Country: US (occurrence: US)
  Receive Date: 20150322
  Receipt Date: 20150524
  Transmission Date: 20150821
  Serious: No
  Sender: FDA-Public Use
  Company Number: US-JNJFOC-20141212502

PATIENT
  Age: 63 Year
  Sex: Female
  Weight: 85.28 kg

DRUGS (5)
  1. QUINAPRIL [Concomitant]
     Active Substance: QUINAPRIL\QUINAPRIL HYDROCHLORIDE
     Route: 048
  2. ASPIRIN. [Concomitant]
     Active Substance: ASPIRIN
     Route: 048
  3. JANUMET [Concomitant]
     Active Substance: METFORMIN HYDROCHLORIDE\SITAGLIPTIN PHOSPHATE
     Indication: DIABETES MELLITUS
     Route: 048
  4. INVOKANA [Suspect]
     Active Substance: CANAGLIFLOZIN
     Indication: DIABETES MELLITUS
     Route: 048
     Dates: start: 20141126, end: 20141212
  5. GLIPIZIDE. [Concomitant]
     Active Substance: GLIPIZIDE
     Indication: DIABETES MELLITUS
     Route: 048

REACTIONS (17)
  - Skin discolouration [Not Recovered/Not Resolved]
  - Scratch [Recovered/Resolved]
  - Vulvovaginal pruritus [Recovered/Resolved]
  - Gastrointestinal inflammation [Recovering/Resolving]
  - Diarrhoea [Recovered/Resolved]
  - Treatment noncompliance [Not Recovered/Not Resolved]
  - Urine output increased [Not Recovered/Not Resolved]
  - Nausea [Unknown]
  - Pruritus [Not Recovered/Not Resolved]
  - Abasia [Recovered/Resolved]
  - Urinary incontinence [Recovered/Resolved]
  - Thirst [Not Recovered/Not Resolved]
  - Gastrointestinal pain [Recovering/Resolving]
  - Pain [Recovering/Resolving]
  - Fungal infection [Recovered/Resolved]
  - Constipation [Recovering/Resolving]
  - Dysuria [Recovered/Resolved]

NARRATIVE: CASE EVENT DATE: 2014
